FAERS Safety Report 7009475-5 (Version None)
Quarter: 2010Q3

REPORT INFORMATION
  Report Type: 
  Country: None (occurrence: None)
  Receive Date: 20100923
  Receipt Date: 20100909
  Transmission Date: 20110219
  Serious: Yes (Other)
  Sender: FDA-Public Use
  Company Number: PHHY2010US59331

PATIENT
  Sex: Male

DRUGS (2)
  1. ZOMETA [Suspect]
     Indication: MULTIPLE MYELOMA
     Dosage: 4 MG, QW4
     Route: 042
     Dates: start: 20091009, end: 20100413
  2. ZOMETA [Suspect]
     Dosage: 4 MG EVERY 4 WEEKS
     Route: 042
     Dates: start: 20100401, end: 20100601

REACTIONS (2)
  - BUCCAL MUCOSAL ROUGHENING [None]
  - OSTEONECROSIS OF JAW [None]
